FAERS Safety Report 4688593-0 (Version None)
Quarter: 2005Q2

REPORT INFORMATION
  Report Type: 
  Country: None (occurrence: None)
  Receive Date: 20050613
  Receipt Date: 20050323
  Transmission Date: 20051028
  Serious: Yes (Hospitalization)
  Sender: FDA-Public Use
  Company Number: 200512675GDDC

PATIENT
  Age: 52 Year
  Sex: Male
  Weight: 105 kg

DRUGS (1)
  1. KETEK [Suspect]
     Route: 048
     Dates: start: 20050202, end: 20050206

REACTIONS (14)
  - ABDOMINAL DISTENSION [None]
  - ABDOMINAL TENDERNESS [None]
  - EOSINOPHIL COUNT INCREASED [None]
  - EOSINOPHILIA [None]
  - FATIGUE [None]
  - GASTRITIS [None]
  - HEPATIC NECROSIS [None]
  - HEPATITIS ACUTE [None]
  - JAUNDICE [None]
  - OCULAR ICTERUS [None]
  - PERICARDIAL EFFUSION [None]
  - PLEURAL EFFUSION [None]
  - PULMONARY OEDEMA [None]
  - PYREXIA [None]
